FAERS Safety Report 6292585-8 (Version None)
Quarter: 2009Q3

REPORT INFORMATION
  Report Type: 
  Country: None (occurrence: None)
  Receive Date: 20090729
  Receipt Date: 20090720
  Transmission Date: 20100115
  Serious: Yes (Other)
  Sender: FDA-Public Use
  Company Number: ADR10892009

PATIENT
  Age: 52 Year

DRUGS (4)
  1. AMLODIPINE [Suspect]
     Indication: HYPERTENSION
     Dosage: ORAL
     Route: 048
     Dates: start: 20081121, end: 20090123
  2. ATENOLOL [Concomitant]
  3. LANSOPRAZOLE [Concomitant]
  4. METOCLOPRAMIDE [Concomitant]

REACTIONS (11)
  - ALOPECIA [None]
  - ARTHRALGIA [None]
  - CONFUSIONAL STATE [None]
  - DEPRESSED MOOD [None]
  - GINGIVAL BLEEDING [None]
  - HYPERAESTHESIA [None]
  - MALAISE [None]
  - MYALGIA [None]
  - NIGHT SWEATS [None]
  - PARANOIA [None]
  - SUPERFICIAL INJURY OF EYE [None]
